FAERS Safety Report 15564444 (Version 1)
Quarter: 2018Q4

REPORT INFORMATION
  Report Type: Spontaneous
  Country: US (occurrence: US)
  Receive Date: 20181030
  Receipt Date: 20181030
  Transmission Date: 20190205
  Serious: No
  Sender: FDA-Public Use
  Company Number: US-APOTEX-2018AP016961

PATIENT
  Sex: Female

DRUGS (1)
  1. FLUTICASONE PROPIONATE NASAL SPRAY USP [Suspect]
     Active Substance: FLUTICASONE PROPIONATE
     Indication: PRODUCT USED FOR UNKNOWN INDICATION
     Dosage: UNK
     Route: 065

REACTIONS (7)
  - Suspected product contamination [Unknown]
  - Eye pain [Unknown]
  - Visual impairment [Unknown]
  - Eye disorder [Unknown]
  - Lacrimation increased [Unknown]
  - Cardiac disorder [Unknown]
  - Eye swelling [Unknown]
